FAERS Safety Report 9748965 (Version 2)
Quarter: 2014Q1

REPORT INFORMATION
  Report Type: Spontaneous
  Country: JP (occurrence: None)
  Receive Date: 20131209
  Receipt Date: 20140107
  Transmission Date: 20141002
  Serious: Yes (Hospitalization)
  Sender: FDA-Public Use
  Company Number: JP-013905

PATIENT
  Age: 75 Year
  Sex: Male
  Weight: 60 kg

DRUGS (3)
  1. GONAX [Suspect]
     Indication: PROSTATE CANCER
     Route: 058
     Dates: start: 20131112, end: 20131112
  2. CALONAL [Suspect]
     Indication: PYREXIA
     Route: 048
     Dates: start: 20131124, end: 20131124
  3. BICALUTAMIDE [Concomitant]

REACTIONS (3)
  - Drug eruption [None]
  - Pyrexia [None]
  - Infection [None]
